FAERS Safety Report 4599388-0 (Version None)
Quarter: 2005Q1

REPORT INFORMATION
  Report Type: 
  Country: None (occurrence: None)
  Receive Date: 20050302
  Receipt Date: 20050302
  Transmission Date: 20050727
  Serious: No
  Sender: FDA-Public Use
  Company Number: None

PATIENT
  Age: 71 Year
  Sex: Female
  Weight: 90.7194 kg

DRUGS (1)
  1. NEURONTIN [Suspect]
     Indication: NEUROPATHY
     Dosage: 400 MG 2 QGS

REACTIONS (5)
  - CONDITION AGGRAVATED [None]
  - DEPRESSION [None]
  - DRUG INEFFECTIVE [None]
  - NEUROPATHY [None]
  - PHARMACEUTICAL PRODUCT COMPLAINT [None]
